FAERS Safety Report 6023009-3 (Version None)
Quarter: 2008Q4

REPORT INFORMATION
  Report Type: 
  Country: None (occurrence: None)
  Receive Date: 20081230
  Receipt Date: 20080214
  Transmission Date: 20090506
  Serious: No
  Sender: FDA-Public Use
  Company Number: US-ABBOTT-08P-163-0438725-00

PATIENT
  Sex: Male
  Weight: 15.89 kg

DRUGS (5)
  1. OMNICEF [Suspect]
     Indication: EAR INFECTION
     Route: 048
     Dates: start: 20080211, end: 20080213
  2. FLOXIN OTIC [Suspect]
     Indication: EAR INFECTION
     Route: 001
  3. MULTI-VITAMIN [Concomitant]
     Indication: DRUG USE FOR UNKNOWN INDICATION
     Route: 048
  4. AUGMENTIN [Concomitant]
     Route: 048
     Dates: start: 20080214
  5. PARACETAMOL [Concomitant]
     Route: 048
     Dates: start: 20080211

REACTIONS (3)
  - ABNORMAL BEHAVIOUR [None]
  - HALLUCINATION [None]
  - SLEEP DISORDER [None]
